FAERS Safety Report 10153215 (Version 1)
Quarter: 2020Q3

REPORT INFORMATION
  Report Type: Spontaneous
  Country: US (occurrence: US)
  Receive Date: 20140505
  Receipt Date: 20140505
  Transmission Date: 20201105
  Serious: Yes (Other)
  Sender: FDA-Public Use
  Company Number: ALCN2014US002642

PATIENT
  Age: 62 Year
  Sex: Male

DRUGS (2)
  1. AMIKACIN. [Suspect]
     Active Substance: AMIKACIN
     Dosage: 1 DF, Q2H
     Route: 047
  2. PREDNISOLONE ACETATE. [Suspect]
     Active Substance: PREDNISOLONE ACETATE
     Dosage: UNK, QID
     Route: 047

REACTIONS (6)
  - Visual acuity reduced [Recovering/Resolving]
  - Posterior capsule opacification [Unknown]
  - Anterior chamber cell [Unknown]
  - Injury corneal [Unknown]
  - Vitritis [Unknown]
  - Drug ineffective [Unknown]
